FAERS Safety Report 22048337 (Version 1)
Quarter: 2023Q1

REPORT INFORMATION
  Report Type: Spontaneous
  Country: PH (occurrence: PH)
  Receive Date: 20230301
  Receipt Date: 20230301
  Transmission Date: 20230418
  Serious: Yes (Other)
  Sender: FDA-Public Use
  Company Number: PH-MLMSERVICE-20230213-4100142-1

PATIENT
  Age: 63 Year
  Sex: Female

DRUGS (1)
  1. MYCOPHENOLATE MOFETIL [Suspect]
     Active Substance: MYCOPHENOLATE MOFETIL
     Indication: Immunoglobulin G4 related disease

REACTIONS (3)
  - Drug intolerance [Unknown]
  - Nephropathy toxic [Unknown]
  - Hepatotoxicity [Unknown]
